FAERS Safety Report 9149490 (Version 1)
Quarter: 2013Q1

REPORT INFORMATION
  Report Type: Spontaneous
  Country: FR (occurrence: FR)
  Receive Date: 20130308
  Receipt Date: 20130308
  Transmission Date: 20140127
  Serious: Yes (Hospitalization)
  Sender: FDA-Public Use
  Company Number: FR-B.I. PHARMACEUTICALS,INC./RIDGEFIELD-2013-FF-00591FF

PATIENT
  Age: 53 Year
  Sex: Female

DRUGS (2)
  1. PRADAXA [Suspect]
     Indication: THROMBOSIS PROPHYLAXIS
     Dosage: 110 MG
     Route: 048
     Dates: start: 20130107, end: 20130107
  2. PRADAXA [Suspect]
     Dosage: 220 MG
     Route: 048
     Dates: start: 20130108, end: 20130114

REACTIONS (1)
  - Phlebitis [Recovered/Resolved]
